FAERS Safety Report 20668461 (Version 1)
Quarter: 2022Q2

REPORT INFORMATION
  Report Type: Spontaneous
  Country: US (occurrence: US)
  Receive Date: 20220404
  Receipt Date: 20220404
  Transmission Date: 20220721
  Serious: No
  Sender: FDA-Public Use
  Company Number: US-PFIZER INC-2021684178

PATIENT
  Age: 58 Year
  Sex: Female

DRUGS (2)
  1. LIPITOR [Suspect]
     Active Substance: ATORVASTATIN CALCIUM
     Indication: Chest pain
     Dosage: 6 DOSES (11 PILLS)
  2. LIPITOR [Suspect]
     Active Substance: ATORVASTATIN CALCIUM
     Indication: Pain in extremity

REACTIONS (7)
  - Musculoskeletal stiffness [Unknown]
  - Arthralgia [Unknown]
  - Chills [Unknown]
  - Hot flush [Unknown]
  - Migraine [Unknown]
  - Pyrexia [Unknown]
  - Off label use [Unknown]

NARRATIVE: CASE EVENT DATE: 20210101
